FAERS Safety Report 18820181 (Version 2)
Quarter: 2023Q1

REPORT INFORMATION
  Report Type: Spontaneous
  Country: US (occurrence: US)
  Receive Date: 20210202
  Receipt Date: 20230123
  Transmission Date: 20230417
  Serious: Yes (Other)
  Sender: FDA-Public Use
  Company Number: US-SUN PHARMACEUTICAL INDUSTRIES LTD-2020R1-256952

PATIENT
  Sex: Male

DRUGS (1)
  1. METOPROLOL [Suspect]
     Active Substance: METOPROLOL
     Indication: Hypertension
     Dosage: UNK
     Route: 065
     Dates: start: 20220615

REACTIONS (9)
  - Drug ineffective [Unknown]
  - Medication error [Unknown]
  - Product tampering [Unknown]
  - Headache [Unknown]
  - Product administration interrupted [Unknown]
  - Hypoaesthesia [Unknown]
  - Diarrhoea [Unknown]
  - Therapy cessation [Unknown]
  - Chills [Unknown]
